FAERS Safety Report 25236016 (Version 2)
Quarter: 2025Q2

REPORT INFORMATION
  Report Type: Spontaneous
  Country: US (occurrence: US)
  Receive Date: 20250424
  Receipt Date: 20250516
  Transmission Date: 20250717
  Serious: Yes (Other)
  Sender: Kenvue
  Company Number: US-KENVUE-20250405706

PATIENT
  Age: 5 Month
  Sex: Male

DRUGS (1)
  1. INFANTS TYLENOL [Suspect]
     Active Substance: ACETAMINOPHEN
     Indication: Product used for unknown indication
     Route: 048

REACTIONS (2)
  - Choking [Unknown]
  - Syringe issue [Unknown]

NARRATIVE: CASE EVENT DATE: 20250409
